FAERS Safety Report 11085553 (Version 2)
Quarter: 2015Q2

REPORT INFORMATION
  Report Type: Spontaneous
  Country: US (occurrence: US)
  Receive Date: 20150503
  Receipt Date: 20150525
  Transmission Date: 20150821
  Serious: No
  Sender: FDA-Public Use
  Company Number: US-JNJFOC-20130613821

PATIENT
  Age: 18 Year
  Sex: Female
  Weight: 58.97 kg

DRUGS (3)
  1. ORTHO EVRA [Suspect]
     Active Substance: ETHINYL ESTRADIOL\NORELGESTROMIN
     Indication: HORMONE LEVEL ABNORMAL
     Route: 062
     Dates: start: 201306
  2. GABAPENTIN. [Concomitant]
     Active Substance: GABAPENTIN
     Indication: PAIN IN EXTREMITY
     Route: 048
     Dates: start: 2013
  3. ORTHO EVRA [Suspect]
     Active Substance: ETHINYL ESTRADIOL\NORELGESTROMIN
     Indication: VAGINAL HAEMORRHAGE
     Route: 062
     Dates: start: 201306

REACTIONS (4)
  - Product quality issue [Unknown]
  - Product adhesion issue [Unknown]
  - Product use issue [Not Recovered/Not Resolved]
  - Drug dose omission [Not Recovered/Not Resolved]

NARRATIVE: CASE EVENT DATE: 201306
